FAERS Safety Report 13029174 (Version 2)
Quarter: 2019Q2

REPORT INFORMATION
  Report Type: Report from Study
  Country: DE (occurrence: DE)
  Receive Date: 20161215
  Receipt Date: 20190415
  Transmission Date: 20190711
  Serious: Yes (Hospitalization)
  Sender: FDA-Public Use
  Company Number: DE-ROCHE-1838916

PATIENT
  Sex: Female

DRUGS (7)
  1. BISOPROLOL [Concomitant]
     Active Substance: BISOPROLOL
     Indication: ARRHYTHMIA
     Route: 065
     Dates: start: 20161002
  2. PREDNISOLONE. [Suspect]
     Active Substance: PREDNISOLONE
     Indication: B-CELL LYMPHOMA
     Dosage: MOST RECENT CYCLE (CYCLE 4): 27/SEP/2016 (DAY 1-5)
     Route: 048
     Dates: start: 20160816
  3. RITUXIMAB. [Suspect]
     Active Substance: RITUXIMAB
     Indication: B-CELL LYMPHOMA
     Dosage: MOST RECENT CYCLE (CYCLE 4): 27/SEP/2016
     Route: 042
     Dates: start: 20160816
  4. CYCLOPHOSPHAMIDE. [Suspect]
     Active Substance: CYCLOPHOSPHAMIDE
     Indication: B-CELL LYMPHOMA
     Dosage: MOST RECENT CYCLE (CYCLE 4): 27/SEP/2016
     Route: 042
     Dates: start: 20160817
  5. DOXORUBICINE [Suspect]
     Active Substance: DOXORUBICIN
     Indication: B-CELL LYMPHOMA
     Dosage: MOST RECENT CYCLE (CYCLE 4): 27/SEP/2016
     Route: 042
     Dates: start: 20160817
  6. PEGFILGRASTIM [Suspect]
     Active Substance: PEGFILGRASTIM
     Indication: B-CELL LYMPHOMA
     Dosage: MOST RECENT CYCLE (CYCLE 4): 27/SEP/2016
     Route: 058
     Dates: start: 20160819
  7. VINCRISTINE [Suspect]
     Active Substance: VINCRISTINE
     Indication: B-CELL LYMPHOMA
     Dosage: MOST RECENT CYCLE (CYCLE 4): 27/SEP/2016
     Route: 042
     Dates: start: 20160817

REACTIONS (3)
  - Chest discomfort [Unknown]
  - Pulmonary embolism [Recovered/Resolved]
  - Pulmonary embolism [Recovered/Resolved]

NARRATIVE: CASE EVENT DATE: 20161002
